FAERS Safety Report 7785505-8 (Version None)
Quarter: 2011Q3

REPORT INFORMATION
  Report Type: 
  Country: None (occurrence: None)
  Receive Date: 20110929
  Receipt Date: 20110520
  Transmission Date: 20111222
  Serious: No
  Sender: FDA-Public Use
  Company Number: US-BAYER-2011-044427

PATIENT
  Age: 10 Year
  Sex: Female
  Weight: 54.422 kg

DRUGS (2)
  1. ALEVE (CAPLET) [Suspect]
     Indication: ARTHRITIS
     Dosage: DAILY DOSE 880 MG
     Route: 048
     Dates: start: 20110501
  2. ALEVE (CAPLET) [Suspect]
     Indication: SYSTEMIC LUPUS ERYTHEMATOSUS

REACTIONS (1)
  - THERAPEUTIC RESPONSE UNEXPECTED [None]
